FAERS Safety Report 5083221-7 (Version None)
Quarter: 2006Q3

REPORT INFORMATION
  Report Type: 
  Country: None (occurrence: None)
  Receive Date: 20060816
  Receipt Date: 20060816
  Transmission Date: 20061208
  Serious: Yes (Hospitalization)
  Sender: FDA-Public Use
  Company Number: None

PATIENT
  Age: 74 Year
  Sex: Female

DRUGS (2)
  1. MORPHINE [Suspect]
     Indication: PAIN
     Dosage: 8 MLS/HR EPIDURAL
     Route: 008
     Dates: start: 20060425, end: 20060427
  2. BUPIVACAINE [Suspect]
     Indication: PAIN
     Dosage: EPIDURAL
     Route: 008
     Dates: start: 20060425, end: 20060427

REACTIONS (4)
  - HYPERCAPNIA [None]
  - HYPOTENSION [None]
  - POST PROCEDURAL COMPLICATION [None]
  - RESPIRATORY FAILURE [None]
